FAERS Safety Report 24858528 (Version 1)
Quarter: 2025Q1

REPORT INFORMATION
  Report Type: Report from Study
  Country: US (occurrence: US)
  Receive Date: 20250117
  Receipt Date: 20250117
  Transmission Date: 20250408
  Serious: No
  Sender: ACCORD
  Company Number: US-Accord-446795

PATIENT
  Age: 55 Year
  Sex: Male
  Weight: 85.73 kg

DRUGS (2)
  1. CLOZAPINE [Suspect]
     Active Substance: CLOZAPINE
     Indication: Schizophrenia
     Route: 048
     Dates: start: 202308
  2. RISPERDAL [Concomitant]
     Active Substance: RISPERIDONE

REACTIONS (1)
  - Imprisonment [Unknown]

NARRATIVE: CASE EVENT DATE: 20240905
